FAERS Safety Report 8876751 (Version 1)
Quarter: 2012Q4

REPORT INFORMATION
  Report Type: 
  Country: US (occurrence: US)
  Receive Date: 20121023
  Receipt Date: 20121023
  Transmission Date: 20130627
  Serious: Yes (Other)
  Sender: FDA-Public Use
  Company Number: US-AMGEN-USASP2011068681

PATIENT
  Age: 57 Year
  Sex: Female

DRUGS (3)
  1. ENBREL [Suspect]
     Indication: RHEUMATOID ARTHRITIS
     Dosage: 50 mg, qwk
  2. ENBREL [Suspect]
     Dosage: 50 mg, qwk
     Dates: start: 20000608
  3. TREXALL [Concomitant]
     Dosage: 1 mg, UNK

REACTIONS (5)
  - Hepatic enzyme increased [Recovered/Resolved]
  - Arthralgia [Recovered/Resolved]
  - Joint stiffness [Recovered/Resolved]
  - Joint swelling [Recovered/Resolved]
  - Pain [Recovered/Resolved]
